FAERS Safety Report 5501701-4 (Version None)
Quarter: 2007Q4

REPORT INFORMATION
  Report Type: 
  Country: None (occurrence: None)
  Receive Date: 20071026
  Receipt Date: 20071017
  Transmission Date: 20080405
  Serious: Yes (Life-Threatening, Hospitalization)
  Sender: FDA-Public Use
  Company Number: E2020-01610-SPO-JP

PATIENT
  Age: 83 Year
  Sex: Female
  Weight: 58 kg

DRUGS (8)
  1. ARICEPT [Suspect]
     Indication: DEMENTIA ALZHEIMER'S TYPE
     Dosage: 5 MG, 1 IN 1 D, ORAL
     Route: 048
     Dates: end: 20070908
  2. ACECOL (TEMOCAPRIL) (TEMOCAPRIL HYDROCHLORIDE) [Concomitant]
  3. MAINTATE (BISOPROLOL FUMARATE) [Concomitant]
  4. CONIEL (BENIDIPINE HYDROCHLORIDE) [Concomitant]
  5. ADALAT [Concomitant]
  6. AMLODIPINE BESYLATE [Concomitant]
  7. ASPIRIN [Concomitant]
  8. DIART (AZOSEMIDE) [Concomitant]

REACTIONS (15)
  - ATRIAL FIBRILLATION [None]
  - BRADYCARDIA [None]
  - CONVULSION [None]
  - CORONARY ARTERY STENOSIS [None]
  - DEPRESSED LEVEL OF CONSCIOUSNESS [None]
  - DRUG INEFFECTIVE [None]
  - ELECTROCARDIOGRAM QT SHORTENED [None]
  - FALL [None]
  - HYPOKALAEMIA [None]
  - LONG QT SYNDROME [None]
  - MYOCARDIAL INFARCTION [None]
  - PALLOR [None]
  - SICK SINUS SYNDROME [None]
  - SINUS ARREST [None]
  - TORSADE DE POINTES [None]
